FAERS Safety Report 13580957 (Version 1)
Quarter: 2017Q2

REPORT INFORMATION
  Report Type: Spontaneous
  Country: US (occurrence: US)
  Receive Date: 20170525
  Receipt Date: 20170525
  Transmission Date: 20170830
  Serious: Yes (Hospitalization)
  Sender: FDA-Public Use
  Company Number: US-UPSHER-SMITH LABORATORIES, INC.-16001769

PATIENT
  Age: 70 Year
  Sex: Male
  Weight: 123.8 kg

DRUGS (6)
  1. KLOR-CON [Suspect]
     Active Substance: POTASSIUM CHLORIDE
     Indication: HYPOKALAEMIA
     Dosage: 40 MEQ, BID
     Route: 048
     Dates: start: 20100726, end: 20111217
  2. CELECOXIB;IBUPROFEN/NAPROXEN;PLACEBO [Suspect]
     Active Substance: CELECOXIB\IBUPROFEN\NAPROXEN\PLACEBO
     Indication: OSTEOARTHRITIS
     Dosage: UNK, 3X/DAY
     Route: 048
     Dates: start: 20090227, end: 20090308
  3. NEXIUM [Concomitant]
     Active Substance: ESOMEPRAZOLE MAGNESIUM
     Indication: PROPHYLAXIS AGAINST GASTROINTESTINAL ULCER
     Dosage: UNK, UNK
     Dates: start: 20090227, end: 20090306
  4. ALDACTONE [Suspect]
     Active Substance: SPIRONOLACTONE
     Indication: OEDEMA PERIPHERAL
     Dosage: 50 MG, BID
     Route: 048
     Dates: start: 20110617, end: 20111217
  5. ALDACTONE [Suspect]
     Active Substance: SPIRONOLACTONE
     Indication: HYPERTENSION
  6. CELECOXIB;IBUPROFEN/NAPROXEN;PLACEBO [Suspect]
     Active Substance: CELECOXIB\IBUPROFEN\NAPROXEN\PLACEBO
     Indication: RHEUMATOID ARTHRITIS

REACTIONS (1)
  - Hyperkalaemia [Recovered/Resolved]

NARRATIVE: CASE EVENT DATE: 20111217
